FAERS Safety Report 24389038 (Version 1)
Quarter: 2024Q4

REPORT INFORMATION
  Report Type: Spontaneous
  Country: US (occurrence: US)
  Receive Date: 20241002
  Receipt Date: 20241002
  Transmission Date: 20250115
  Serious: No
  Sender: BAUSCH AND LOMB
  Company Number: US-SHIRE-US201816056

PATIENT
  Sex: Female

DRUGS (4)
  1. XIIDRA [Suspect]
     Active Substance: LIFITEGRAST
     Indication: Dry eye
     Route: 047
     Dates: start: 20180415
  2. REFRESH                            /00007001/ [Concomitant]
     Indication: Dry eye
  3. IYUZEH [Concomitant]
     Active Substance: LATANOPROST
     Indication: Product used for unknown indication
     Route: 065
  4. SYSTANE PRESERVATIVE FREE (OTC) [Concomitant]
     Indication: Dry eye

REACTIONS (3)
  - Eye irritation [Recovered/Resolved]
  - Vision blurred [Unknown]
  - Inappropriate schedule of product administration [Unknown]

NARRATIVE: CASE EVENT DATE: 20180415
